FAERS Safety Report 9934682 (Version 1)
Quarter: 2014Q1

REPORT INFORMATION
  Report Type: Spontaneous
  Country: US (occurrence: US)
  Receive Date: 20140228
  Receipt Date: 20140228
  Transmission Date: 20141002
  Serious: No
  Sender: FDA-Public Use
  Company Number: US-ABBVIE-13P-163-1062993-00

PATIENT
  Age: 40 Year
  Sex: Female

DRUGS (5)
  1. DEPAKENE [Suspect]
     Indication: PETIT MAL EPILEPSY
     Dosage: 1500 MG DAILY
  2. DEPAKENE [Suspect]
     Indication: AFFECTIVE DISORDER
  3. LITHIUM [Concomitant]
     Indication: PRODUCT USED FOR UNKNOWN INDICATION
  4. METFORMIN [Concomitant]
     Indication: PRODUCT USED FOR UNKNOWN INDICATION
  5. EFFEXOR [Concomitant]
     Indication: PRODUCT USED FOR UNKNOWN INDICATION

REACTIONS (1)
  - Hypothyroidism [Recovered/Resolved]
